FAERS Safety Report 11792549 (Version 2)
Quarter: 2016Q1

REPORT INFORMATION
  Report Type: Report from Study
  Country: CA (occurrence: CA)
  Receive Date: 20151202
  Receipt Date: 20160308
  Transmission Date: 20160525
  Serious: Yes (Hospitalization, Other)
  Sender: FDA-Public Use
  Company Number: CA-BEH-2015056142

PATIENT
  Age: 29 Year
  Sex: Female
  Weight: 58 kg

DRUGS (3)
  1. HIZENTRA [Suspect]
     Active Substance: HUMAN IMMUNOGLOBULIN G
     Indication: POSTURAL ORTHOSTATIC TACHYCARDIA SYNDROME
     Dosage: PUMP METHOD
     Route: 058
     Dates: start: 20150305
  2. ENDOCORT [Concomitant]
  3. MYCOPHENOLIC ACID. [Concomitant]
     Active Substance: MYCOPHENOLIC ACID

REACTIONS (9)
  - Autoimmune hepatitis [Recovering/Resolving]
  - Pancreatitis [Unknown]
  - Weight decreased [Unknown]
  - Kidney infection [Recovered/Resolved]
  - Amenorrhoea [Not Recovered/Not Resolved]
  - Pancreatitis [Unknown]
  - Hepatic enzyme increased [Recovering/Resolving]
  - Blood urine present [Recovered/Resolved]
  - Hepatitis acute [Unknown]

NARRATIVE: CASE EVENT DATE: 201509
